FAERS Safety Report 8832400 (Version 1)
Quarter: 2012Q4

REPORT INFORMATION
  Report Type: Report from Study
  Country: CA (occurrence: CA)
  Receive Date: 20121009
  Receipt Date: 20121009
  Transmission Date: 20130627
  Serious: Yes (Other)
  Sender: FDA-Public Use
  Company Number: CA-ROCHE-1139349

PATIENT
  Sex: Male

DRUGS (1)
  1. FUZEON [Suspect]
     Indication: HIV INFECTION
     Route: 058
     Dates: end: 20070926

REACTIONS (4)
  - Pancreatic carcinoma [Unknown]
  - Injection site mass [Recovered/Resolved]
  - Pain in extremity [Unknown]
  - Gait disturbance [Unknown]
